FAERS Safety Report 5087574-5 (Version None)
Quarter: 2006Q3

REPORT INFORMATION
  Report Type: 
  Country: None (occurrence: None)
  Receive Date: 20060821
  Receipt Date: 20060807
  Transmission Date: 20061208
  Serious: Yes (Other)
  Sender: FDA-Public Use
  Company Number: 2006097549

PATIENT
  Sex: Male

DRUGS (2)
  1. LYRICA [Suspect]
     Indication: CONVULSION
  2. ALL OTHER THERAPUETIC PRODUCTS (ALL OTHER THERAPEUTIC PRODUCTS) [Suspect]
     Indication: CONVULSION

REACTIONS (3)
  - CONVULSION [None]
  - DIZZINESS [None]
  - INAPPROPRIATE SCHEDULE OF DRUG ADMINISTRATION [None]
